FAERS Safety Report 8883092 (Version 6)
Quarter: 2013Q4

REPORT INFORMATION
  Report Type: Report from Study
  Country: AR (occurrence: AR)
  Receive Date: 20121102
  Receipt Date: 20131104
  Transmission Date: 20140711
  Serious: Yes (Life-Threatening, Hospitalization, Other)
  Sender: FDA-Public Use
  Company Number: PHHY2012AR096874

PATIENT
  Age: 84 Year
  Sex: Female

DRUGS (3)
  1. ACLASTA [Suspect]
     Indication: OSTEOARTHRITIS
     Dosage: UNK UKN, YEARLY
     Route: 042
     Dates: start: 20111109
  2. ACLASTA [Suspect]
     Indication: SPINAL CORD HERNIATION
     Dosage: UNK UKN, YEARLY
     Route: 042
     Dates: start: 20121104
  3. EXFORGE [Suspect]
     Dosage: 1 DF(AMLODIPINE/VALSARTAN) 5/160 MG, DAILY

REACTIONS (11)
  - Feeling abnormal [Not Recovered/Not Resolved]
  - Haemorrhage [Unknown]
  - Anaemia [Recovering/Resolving]
  - Osteitis deformans [Unknown]
  - Musculoskeletal discomfort [Not Recovered/Not Resolved]
  - Back pain [Not Recovered/Not Resolved]
  - Arthralgia [Not Recovered/Not Resolved]
  - Hernia [Not Recovered/Not Resolved]
  - Pain [Not Recovered/Not Resolved]
  - Local swelling [Not Recovered/Not Resolved]
  - Dizziness [Not Recovered/Not Resolved]
